FAERS Safety Report 7793593-8 (Version None)
Quarter: 2011Q4

REPORT INFORMATION
  Report Type: 
  Country: None (occurrence: None)
  Receive Date: 20111003
  Receipt Date: 20110419
  Transmission Date: 20120403
  Serious: No
  Sender: FDA-Public Use
  Company Number: US-BAYER-2011-034718

PATIENT
  Age: 58 Year
  Sex: Male

DRUGS (4)
  1. ASPIRIN [Concomitant]
     Dosage: UNK
  2. LEVITRA [Suspect]
     Dosage: 20 MG, PRN
     Route: 048
  3. TOPROL-XL [Concomitant]
     Dosage: UNK
  4. ALTACE [Concomitant]
     Dosage: UNK

REACTIONS (1)
  - DRUG INEFFECTIVE [None]
